FAERS Safety Report 16285168 (Version 2)
Quarter: 2019Q3

REPORT INFORMATION
  Report Type: Report from Study
  Country: US (occurrence: US)
  Receive Date: 20190508
  Receipt Date: 20190718
  Transmission Date: 20191004
  Serious: Yes (Other)
  Sender: FDA-Public Use
  Company Number: PHEH2019US018225

PATIENT
  Sex: Male

DRUGS (2)
  1. INSULIN [Concomitant]
     Active Substance: INSULIN NOS
     Indication: DIABETES MELLITUS
     Route: 065
  2. AFINITOR [Suspect]
     Active Substance: EVEROLIMUS
     Indication: LUNG NEOPLASM
     Dosage: 5 MG, QD
     Route: 048

REACTIONS (7)
  - Malignant neoplasm progression [Unknown]
  - Blood glucose decreased [Not Recovered/Not Resolved]
  - Lung neoplasm [Unknown]
  - Increased appetite [Unknown]
  - Bradyphrenia [Unknown]
  - Drug ineffective for unapproved indication [Unknown]
  - Fatigue [Not Recovered/Not Resolved]
